FAERS Safety Report 9504848 (Version 1)
Quarter: 2013Q3

REPORT INFORMATION
  Report Type: Report from Study
  Country: US (occurrence: US)
  Receive Date: 20130906
  Receipt Date: 20130906
  Transmission Date: 20140515
  Serious: Yes (Hospitalization)
  Sender: FDA-Public Use
  Company Number: US-ROCHE-1270664

PATIENT
  Age: 64 Year
  Sex: Male

DRUGS (10)
  1. XOLAIR [Suspect]
     Indication: ASTHMA
     Dosage: 150MG FOR SOLUTION 1.2ML EACH ARM MONTHLY
     Route: 058
     Dates: start: 20110222
  2. SPIRIVA HANDIHALER [Concomitant]
     Route: 065
  3. ADVAIR DISKUS [Concomitant]
     Dosage: 500-50MCG/DOSE
     Route: 065
     Dates: start: 20121107
  4. PERFOROMIST [Concomitant]
     Dosage: 20MCG IN 2ML NEBULIZED SOLUTION
     Route: 065
     Dates: start: 20110610
  5. ALBUTEROL SULFATE [Concomitant]
     Dosage: PRN (2.5MG IN 3ML NEBULIZED SOLUTION), ONCE IN 4-6 HOURS
     Route: 065
     Dates: start: 20110404
  6. BENADRYL (UNITED STATES) [Concomitant]
     Route: 048
  7. HYDROCORTISONE [Concomitant]
     Route: 048
  8. SINGULAIR [Concomitant]
     Route: 048
  9. VENTOLIN HFA [Concomitant]
     Dosage: 108MCG/ACTUATION
     Route: 065
  10. THEOPHYLLINE CONTROLLED-RELEASE [Concomitant]
     Route: 048

REACTIONS (2)
  - Asthma [Recovered/Resolved]
  - Cough [Unknown]
